FAERS Safety Report 4623915-8 (Version None)
Quarter: 2005Q1

REPORT INFORMATION
  Report Type: 
  Country: None (occurrence: None)
  Receive Date: 20050331
  Receipt Date: 20020905
  Transmission Date: 20050727
  Serious: Yes (Hospitalization, Disabling)
  Sender: FDA-Public Use
  Company Number: US-MERCK-0209USA00469

PATIENT
  Age: 68 Year
  Sex: Male
  Weight: 71 kg

DRUGS (20)
  1. DALMANE [Concomitant]
     Route: 065
     Dates: start: 20000601
  2. VASOTEC [Concomitant]
     Route: 065
     Dates: end: 20020701
  3. VIOXX [Suspect]
     Indication: BACK PAIN
     Route: 048
     Dates: start: 20001001, end: 20010701
  4. VIOXX [Suspect]
     Indication: PAIN IN EXTREMITY
     Route: 048
     Dates: start: 20001001, end: 20010701
  5. ATENOLOL [Concomitant]
     Route: 065
     Dates: end: 20010201
  6. PROZAC [Concomitant]
     Indication: DEPRESSION
     Route: 065
     Dates: end: 20010201
  7. PROZAC [Concomitant]
     Indication: GENERALISED ANXIETY DISORDER
     Route: 065
     Dates: end: 20010201
  8. TYLENOL (CAPLET) [Concomitant]
     Indication: PAIN
     Route: 065
     Dates: end: 20010201
  9. BUSPAR [Concomitant]
     Route: 065
     Dates: end: 20010201
  10. ATROVENT [Concomitant]
     Route: 065
     Dates: end: 20010201
  11. MAGNESIUM SULFATE [Concomitant]
     Route: 065
     Dates: end: 20010201
  12. CLAFORAN [Concomitant]
     Route: 065
     Dates: end: 20010201
  13. CORDARONE [Concomitant]
     Route: 065
     Dates: end: 20010201
  14. PEPCID [Concomitant]
     Route: 065
     Dates: end: 20010201
  15. REOPRO [Concomitant]
     Route: 065
     Dates: end: 20010201
  16. DOPAMINE HYDROCHLORIDE [Concomitant]
     Route: 065
     Dates: end: 20010201
  17. RESTORIL [Concomitant]
     Route: 065
     Dates: end: 20010201
  18. ASPIRIN [Concomitant]
     Indication: PROPHYLAXIS
     Route: 048
     Dates: start: 20010201
  19. CELEXA [Concomitant]
     Route: 065
     Dates: end: 20010201
  20. NEURONTIN [Concomitant]
     Route: 065
     Dates: end: 20010201

REACTIONS (27)
  - ACUTE MYOCARDIAL INFARCTION [None]
  - ATHEROSCLEROSIS [None]
  - BLOOD CHOLESTEROL INCREASED [None]
  - BRADYCARDIA [None]
  - CARDIAC FAILURE CONGESTIVE [None]
  - CARDIO-RESPIRATORY ARREST [None]
  - CARDIOGENIC SHOCK [None]
  - CARDIOMYOPATHY [None]
  - CHEST PAIN [None]
  - CONVULSION [None]
  - CORONARY ARTERY DISEASE [None]
  - DIZZINESS [None]
  - DYSPNOEA [None]
  - HAEMATURIA [None]
  - HYPERTENSION [None]
  - ISCHAEMIC CARDIOMYOPATHY [None]
  - LIMB DISCOMFORT [None]
  - LUNG INFILTRATION [None]
  - MYALGIA [None]
  - MYOCARDIAL INFARCTION [None]
  - NAUSEA [None]
  - ORTHOSTATIC HYPOTENSION [None]
  - PAPILLOMA [None]
  - SKIN LACERATION [None]
  - SYNCOPE [None]
  - VENTRICULAR TACHYCARDIA [None]
  - VOMITING [None]
